FAERS Safety Report 16206078 (Version 1)
Quarter: 2019Q2

REPORT INFORMATION
  Report Type: Spontaneous
  Country: FR (occurrence: FR)
  Receive Date: 20190417
  Receipt Date: 20190417
  Transmission Date: 20190711
  Serious: Yes (Death)
  Sender: FDA-Public Use
  Company Number: FR-ADIENNEP-2019AD000169

PATIENT
  Age: 51 Year
  Sex: Female
  Weight: 60 kg

DRUGS (11)
  1. ETOPOSIDE MYLAN [Suspect]
     Active Substance: ETOPOSIDE
     Indication: DIFFUSE LARGE B-CELL LYMPHOMA
     Dosage: 160 MG CYCLICAL
     Route: 042
     Dates: start: 20180612, end: 20181003
  2. BUSILVEX [Suspect]
     Active Substance: BUSULFAN
     Indication: DIFFUSE LARGE B-CELL LYMPHOMA
     Dosage: 109 MG CYCLICAL
     Route: 042
     Dates: start: 20181216, end: 20181216
  3. PROPANOLOL [Concomitant]
     Active Substance: PROPRANOLOL HYDROCHLORIDE
     Indication: TACHYCARDIA
     Dosage: 60 MG DAILY
     Route: 048
     Dates: start: 2016
  4. ESOMEPRAZOLE. [Concomitant]
     Active Substance: ESOMEPRAZOLE MAGNESIUM
     Indication: PRODUCT USED FOR UNKNOWN INDICATION
     Dosage: 20 MG DAILY
     Route: 048
  5. BICNU [Suspect]
     Active Substance: CARMUSTINE
     Indication: DIFFUSE LARGE B-CELL LYMPHOMA
     Dosage: 160 MG CYCLICAL
     Route: 042
     Dates: start: 20180613, end: 20181004
  6. METHOTREXATE MYLAN [Suspect]
     Active Substance: METHOTREXATE SODIUM
     Indication: DIFFUSE LARGE B-CELL LYMPHOMA
     Dosage: 4800 MG CYCLICAL
     Route: 042
     Dates: start: 20180611, end: 20181016
  7. BUSILVEX [Suspect]
     Active Substance: BUSULFAN
     Indication: DIFFUSE LARGE B-CELL LYMPHOMA
     Dosage: 218 MG CYCLICAL
     Route: 042
     Dates: start: 20181214, end: 20181215
  8. CYTARABINE SANDOZ [Suspect]
     Active Substance: CYTARABINE
     Indication: DIFFUSE LARGE B-CELL LYMPHOMA
     Dosage: 4800 MG CYCLICAL
     Route: 042
     Dates: start: 20181031, end: 20181101
  9. TEPADINA [Suspect]
     Active Substance: THIOTEPA
     Indication: DIFFUSE LARGE B-CELL LYMPHOMA
     Dosage: 440 MG CYCLICAL
     Route: 042
     Dates: start: 20181211, end: 20181213
  10. TRUXIMA [Suspect]
     Active Substance: RITUXIMAB-ABBS
     Indication: DIFFUSE LARGE B-CELL LYMPHOMA
     Dosage: 375 MG/M2 SOIT 600MG J1; CYCLICAL??????
     Route: 042
     Dates: start: 20180611, end: 20181101
  11. ENDOXAN [Suspect]
     Active Substance: CYCLOPHOSPHAMIDE
     Indication: DIFFUSE LARGE B-CELL LYMPHOMA
     Dosage: 4100 MG CYCLICAL
     Route: 042
     Dates: start: 20181217, end: 20181217

REACTIONS (2)
  - Pulmonary fibrosis [Fatal]
  - Acute respiratory distress syndrome [Fatal]

NARRATIVE: CASE EVENT DATE: 20190215
